FAERS Safety Report 25139361 (Version 1)
Quarter: 2025Q1

REPORT INFORMATION
  Report Type: Spontaneous
  Country: MX (occurrence: MX)
  Receive Date: 20250331
  Receipt Date: 20250331
  Transmission Date: 20250408
  Serious: Yes (Other)
  Sender: UNICHEM
  Company Number: MX-UNICHEM LABORATORIES LIMITED-UNI-2025-MX-001666

PATIENT

DRUGS (1)
  1. AMIODARONE [Suspect]
     Active Substance: AMIODARONE
     Indication: Myocardial infarction
     Route: 065

REACTIONS (2)
  - Pulmonary hypertension [Recovering/Resolving]
  - Pulmonary toxicity [Recovering/Resolving]
